FAERS Safety Report 13274913 (Version 2)
Quarter: 2017Q1

REPORT INFORMATION
  Report Type: Report from Study
  Country: None (occurrence: BE)
  Receive Date: 20170227
  Receipt Date: 20170316
  Transmission Date: 20170428
  Serious: Yes (Hospitalization)
  Sender: FDA-Public Use
  Company Number: BE-ABBVIE-17P-013-1888425-00

PATIENT
  Age: 82 Year
  Sex: Male

DRUGS (5)
  1. DUODOPA [Suspect]
     Active Substance: CARBIDOPA\LEVODOPA
     Indication: PARKINSON^S DISEASE
     Dosage: AM=8.5ML, CD=3.3ML/HR DURING 16HRS, ED=2ML
     Route: 050
     Dates: start: 20110704, end: 20110706
  2. DUODOPA [Suspect]
     Active Substance: CARBIDOPA\LEVODOPA
     Dosage: AM=7ML, CD=2.8ML/HR DURING 16HRS, ED=1.8ML
     Route: 050
     Dates: start: 20170221, end: 20170309
  3. DUODOPA [Suspect]
     Active Substance: CARBIDOPA\LEVODOPA
     Dosage: AM=7ML, CD=2.4ML/HR DURING 16HRS, ED=1.8ML
     Route: 050
     Dates: start: 20170309
  4. DUODOPA [Suspect]
     Active Substance: CARBIDOPA\LEVODOPA
     Dosage: DOSES CONTINUOUSLY MONITORED AND ADAPTED
     Route: 050
     Dates: start: 20110706, end: 20170207
  5. DUODOPA [Suspect]
     Active Substance: CARBIDOPA\LEVODOPA
     Dosage: AM=7ML, CD=UNKNOWN 16HRS, ED=1.8ML
     Route: 050
     Dates: start: 20170207, end: 20170221

REACTIONS (4)
  - Dyskinesia [Not Recovered/Not Resolved]
  - Pneumonia [Not Recovered/Not Resolved]
  - Dehydration [Unknown]
  - Pyrexia [Unknown]

NARRATIVE: CASE EVENT DATE: 20170220
